FAERS Safety Report 9369564 (Version 1)
Quarter: 2013Q2

REPORT INFORMATION
  Report Type: Spontaneous
  Country: US (occurrence: US)
  Receive Date: 20130626
  Receipt Date: 20130626
  Transmission Date: 20140414
  Serious: No
  Sender: FDA-Public Use
  Company Number: US-PFIZER INC-2013190325

PATIENT
  Age: 38 Year
  Sex: Female
  Weight: 72.56 kg

DRUGS (3)
  1. LYRICA [Suspect]
     Indication: FIBROMYALGIA
     Dosage: 300 MG, DAILY
     Dates: start: 2010
  2. TRAZODONE [Concomitant]
     Indication: DEPRESSION
     Dosage: 150 MG, UNK
  3. CYMBALTA [Concomitant]
     Indication: ANXIETY
     Dosage: 60 MG, 2X/DAY

REACTIONS (1)
  - Pain [Unknown]
